FAERS Safety Report 19064609 (Version 1)
Quarter: 2021Q1

REPORT INFORMATION
  Report Type: Spontaneous
  Country: IN (occurrence: IN)
  Receive Date: 20210326
  Receipt Date: 20210326
  Transmission Date: 20210420
  Serious: Yes (Other)
  Sender: FDA-Public Use
  Company Number: IN-JNJFOC-20210349718

PATIENT

DRUGS (2)
  1. SIBELIUM (FLUNARIZINE) [Suspect]
     Active Substance: FLUNARIZINE
     Indication: PRODUCT USED FOR UNKNOWN INDICATION
     Route: 065
  2. TOPAMAC [Suspect]
     Active Substance: TOPIRAMATE
     Indication: PRODUCT USED FOR UNKNOWN INDICATION
     Route: 065

REACTIONS (7)
  - Sedation [Unknown]
  - Parkinsonism [Unknown]
  - Dizziness [Unknown]
  - Disturbance in attention [Unknown]
  - Nausea [Unknown]
  - Paraesthesia [Unknown]
  - Glaucoma [Unknown]
